FAERS Safety Report 4847327-7 (Version None)
Quarter: 2005Q4

REPORT INFORMATION
  Report Type: 
  Country: None (occurrence: None)
  Receive Date: 20051207
  Receipt Date: 20021105
  Transmission Date: 20060501
  Serious: Yes (Congenital Anomaly, Other)
  Sender: FDA-Public Use
  Company Number: 2002CG01679

PATIENT
  Age: 38 Year
  Sex: Female
  Weight: 85 kg

DRUGS (2)
  1. ATACAND [Suspect]
     Indication: HYPERTENSION
     Route: 048
     Dates: end: 20021004
  2. AVLOCARDYL [Concomitant]
     Indication: HYPERTENSION
     Route: 048

REACTIONS (7)
  - ABORTION INDUCED [None]
  - DRUG EXPOSURE DURING PREGNANCY [None]
  - FACIAL DYSMORPHISM [None]
  - FOETAL DISORDER [None]
  - OLIGOHYDRAMNIOS [None]
  - RENAL FAILURE [None]
  - RENAL HYPOPLASIA [None]
